FAERS Safety Report 9060450 (Version 2)
Quarter: 2013Q1

REPORT INFORMATION
  Report Type: Spontaneous
  Country: US (occurrence: US)
  Receive Date: 20130212
  Receipt Date: 20130220
  Transmission Date: 20140127
  Serious: Yes (Other)
  Sender: FDA-Public Use
  Company Number: US-ABBOTT-13P-163-1047155-00

PATIENT
  Sex: Female
  Weight: 74.91 kg

DRUGS (2)
  1. HUMIRA PEN [Suspect]
     Indication: PSORIASIS
     Dates: start: 20120613, end: 20130118
  2. HUMIRA PEN [Suspect]
     Indication: PSORIATIC ARTHROPATHY

REACTIONS (1)
  - Pustular psoriasis [Not Recovered/Not Resolved]
